FAERS Safety Report 16095349 (Version 1)
Quarter: 2019Q2

REPORT INFORMATION
  Report Type: Spontaneous
  Country: US (occurrence: US)
  Receive Date: 20190320
  Receipt Date: 20190320
  Transmission Date: 20190711
  Serious: Yes (Hospitalization)
  Sender: FDA-Public Use
  Company Number: None

PATIENT
  Age: 14 Year
  Sex: Male
  Weight: 62.5 kg

DRUGS (1)
  1. MESALAMINE. [Suspect]
     Active Substance: MESALAMINE

REACTIONS (18)
  - Oxygen saturation decreased [None]
  - Neck pain [None]
  - Band neutrophil count increased [None]
  - Hypotension [None]
  - Musculoskeletal stiffness [None]
  - Pyrexia [None]
  - C-reactive protein increased [None]
  - Ejection fraction decreased [None]
  - Tachypnoea [None]
  - White blood cell count increased [None]
  - Chest X-ray abnormal [None]
  - Chest pain [None]
  - Abdominal pain [None]
  - Inflammatory marker increased [None]
  - Red blood cell sedimentation rate increased [None]
  - Viral myocarditis [None]
  - Procalcitonin increased [None]
  - Electrocardiogram T wave inversion [None]

NARRATIVE: CASE EVENT DATE: 20190317
